FAERS Safety Report 22633898 (Version 2)
Quarter: 2024Q1

REPORT INFORMATION
  Report Type: Spontaneous
  Country: NL (occurrence: NL)
  Receive Date: 20230623
  Receipt Date: 20240329
  Transmission Date: 20240410
  Serious: Yes (Death, Other)
  Sender: FDA-Public Use
  Company Number: None

PATIENT
  Age: 19 Year
  Sex: Male

DRUGS (21)
  1. LEVETIRACETAM [Suspect]
     Active Substance: LEVETIRACETAM
     Indication: Off label use
     Dosage: UNK  UNK
  2. LEVETIRACETAM [Suspect]
     Active Substance: LEVETIRACETAM
     Indication: Myoclonus
  3. LEVETIRACETAM [Suspect]
     Active Substance: LEVETIRACETAM
     Indication: Seizure
  4. LEVETIRACETAM [Suspect]
     Active Substance: LEVETIRACETAM
     Indication: Epilepsy
  5. MIDAZOLAM [Suspect]
     Active Substance: MIDAZOLAM
     Indication: Seizure
     Dosage: UNK  UNK
  6. MIDAZOLAM [Suspect]
     Active Substance: MIDAZOLAM
     Indication: Sedation
  7. MIDAZOLAM [Suspect]
     Active Substance: MIDAZOLAM
     Indication: Sedative therapy
  8. PHENYTOIN [Suspect]
     Active Substance: PHENYTOIN
     Indication: Epilepsy
     Dosage: UNK  UNK
  9. PHENYTOIN [Suspect]
     Active Substance: PHENYTOIN
     Indication: Seizure
  10. PROPOFOL [Suspect]
     Active Substance: PROPOFOL
     Indication: Myoclonus
     Dosage: UNK  UNK
  11. PROPOFOL [Suspect]
     Active Substance: PROPOFOL
     Indication: Seizure
  12. REMIFENTANIL HYDROCHLORIDE [Suspect]
     Active Substance: REMIFENTANIL HYDROCHLORIDE
     Indication: Sedation
     Dosage: UNK  UNK
  13. THIOPENTAL SODIUM [Suspect]
     Active Substance: THIOPENTAL SODIUM
     Indication: Seizure
     Dosage: UNK  UNK
  14. THIOPENTAL SODIUM [Suspect]
     Active Substance: THIOPENTAL SODIUM
     Indication: Epilepsy
  15. VALPROATE SODIUM [Suspect]
     Active Substance: VALPROATE SODIUM
     Indication: Epilepsy
     Dosage: UNK  UNK
  16. VALPROATE SODIUM [Suspect]
     Active Substance: VALPROATE SODIUM
     Indication: Seizure
  17. ARIPIPRAZOLE [Concomitant]
     Active Substance: ARIPIPRAZOLE
     Indication: Psychotic symptom
     Dosage: UNK  UNK
  18. DOBUTAMINE [Concomitant]
     Active Substance: DOBUTAMINE HYDROCHLORIDE
     Indication: Cardiac arrest
     Dosage: UNK  UNK
  19. ENOXIMONE [Concomitant]
     Active Substance: ENOXIMONE
     Indication: Cardiac arrest
     Dosage: UNK  UNK
  20. NITROGLYCERIN [Concomitant]
     Active Substance: NITROGLYCERIN
     Indication: Cardiac arrest
     Dosage: UNK  UNK
  21. VASOPRESSIN [Concomitant]
     Active Substance: VASOPRESSIN
     Indication: Product used for unknown indication
     Dosage: UNK  UNK

REACTIONS (4)
  - Status epilepticus [Fatal]
  - Diabetes insipidus [Fatal]
  - Drug ineffective [Unknown]
  - Off label use [Unknown]
